FAERS Safety Report 5061200-3 (Version None)
Quarter: 2006Q3

REPORT INFORMATION
  Report Type: 
  Country: None (occurrence: None)
  Receive Date: 20060725
  Receipt Date: 20060717
  Transmission Date: 20061208
  Serious: Yes (Hospitalization)
  Sender: FDA-Public Use
  Company Number: MX-ROCHE-455744

PATIENT
  Age: 55 Year
  Sex: Male
  Weight: 70 kg

DRUGS (2)
  1. ROCEPHIN [Suspect]
     Indication: RESPIRATORY TRACT INFECTION
     Route: 030
     Dates: start: 20060716, end: 20060716
  2. VIRLIX [Concomitant]
     Route: 048
     Dates: start: 20060713, end: 20060715

REACTIONS (3)
  - DYSPNOEA [None]
  - HYPOTENSION [None]
  - LOSS OF CONSCIOUSNESS [None]
